FAERS Safety Report 8813779 (Version 3)
Quarter: 2013Q2

REPORT INFORMATION
  Report Type: Report from Study
  Country: CZ (occurrence: CZ)
  Receive Date: 20120928
  Receipt Date: 20130627
  Transmission Date: 20140414
  Serious: Yes (Death, Hospitalization, Other)
  Sender: FDA-Public Use
  Company Number: CZ-BIOGENIDEC-2012BI040805

PATIENT
  Age: 48 Year
  Sex: Female

DRUGS (8)
  1. TYSABRI [Suspect]
     Indication: MULTIPLE SCLEROSIS
     Route: 042
     Dates: start: 20100818, end: 20120626
  2. BACLOFEN [Concomitant]
     Indication: MUSCLE SPASTICITY
     Route: 048
     Dates: start: 20050223, end: 20130122
  3. SERTRALINE [Concomitant]
     Indication: DEPRESSION
     Route: 048
     Dates: start: 20090422, end: 20130122
  4. TOLTERODINE [Concomitant]
     Indication: NEUROGENIC BLADDER
     Dates: start: 20060927, end: 20130122
  5. TOLTERODINE [Concomitant]
     Indication: BLADDER DYSFUNCTION
     Dates: start: 20060927, end: 20130122
  6. NIFURATEL [Concomitant]
     Indication: URINARY TRACT INFECTION
     Route: 048
     Dates: start: 20060207, end: 20130122
  7. NIFURATEL [Concomitant]
     Indication: BLADDER DYSFUNCTION
     Route: 048
     Dates: start: 20060207, end: 20130122
  8. PANTOPRAZOL [Concomitant]
     Indication: GASTRIC ULCER
     Route: 048
     Dates: start: 20090416, end: 20130122

REACTIONS (4)
  - Renal cancer [Not Recovered/Not Resolved]
  - Constipation [Unknown]
  - Intestinal obstruction [Unknown]
  - Colon cancer metastatic [Fatal]
